FAERS Safety Report 6781192-6 (Version None)
Quarter: 2010Q2

REPORT INFORMATION
  Report Type: 
  Country: None (occurrence: None)
  Receive Date: 20100621
  Receipt Date: 20100611
  Transmission Date: 20101027
  Serious: Yes (Hospitalization, Other)
  Sender: FDA-Public Use
  Company Number: US-PFIZER INC-2010044835

PATIENT
  Sex: Female
  Weight: 68 kg

DRUGS (16)
  1. CELEBREX [Suspect]
     Indication: BACK PAIN
     Dosage: 100 MG, UNK
     Route: 048
     Dates: start: 20000701, end: 20080101
  2. CELEBREX [Suspect]
     Dosage: 200 MG, UNK
     Route: 048
     Dates: end: 20080101
  3. IBUPROFEN [Suspect]
     Dosage: UNK
     Route: 065
     Dates: start: 19990101, end: 20050101
  4. ATENOLOL [Concomitant]
     Dosage: 50 MG, UNK
  5. MAXZIDE [Concomitant]
     Dosage: 37.5MG/25MG
  6. LISINOPRIL [Concomitant]
     Dosage: 20 MG, UNK
  7. NIFEDIPINE [Concomitant]
     Dosage: 60 MG, UNK
  8. LIPITOR [Concomitant]
  9. HYDROCHLOROTHIAZIDE [Concomitant]
     Dosage: 12.5 MG, UNK
  10. ARANESP [Concomitant]
  11. CLARITIN [Concomitant]
  12. MULTIVITAMINS AND IRON [Concomitant]
  13. ACETYLSALICYLIC ACID [Concomitant]
  14. LOVASTATIN [Concomitant]
  15. ZYRTEC [Concomitant]
  16. CRESTOR [Concomitant]

REACTIONS (3)
  - DRUG INTERACTION [None]
  - PRODUCT QUALITY ISSUE [None]
  - RENAL FAILURE [None]
